FAERS Safety Report 24302576 (Version 1)
Quarter: 2024Q3

REPORT INFORMATION
  Report Type: Spontaneous
  Country: US (occurrence: US)
  Receive Date: 20240910
  Receipt Date: 20240910
  Transmission Date: 20241017
  Serious: Yes (Hospitalization)
  Sender: VERTEX
  Company Number: US-VERTEX PHARMACEUTICALS-2024-014148

PATIENT
  Age: 19 Year

DRUGS (1)
  1. KALYDECO [Suspect]
     Active Substance: IVACAFTOR
     Indication: Cystic fibrosis
     Dosage: 150 MG IVACAFTOR TABLET (ONE SINGULAR PILL)
     Route: 048

REACTIONS (2)
  - Hospitalisation [Recovered/Resolved]
  - Therapy interrupted [Recovered/Resolved]
